FAERS Safety Report 16758993 (Version 1)
Quarter: 2019Q3

REPORT INFORMATION
  Report Type: Spontaneous
  Country: IT (occurrence: IT)
  Receive Date: 20190830
  Receipt Date: 20190830
  Transmission Date: 20191005
  Serious: Yes (Hospitalization, Other)
  Sender: FDA-Public Use
  Company Number: CHPA2014IT004992

PATIENT
  Age: 3 Year
  Sex: Male

DRUGS (2)
  1. IBUPROFEN. [Suspect]
     Active Substance: IBUPROFEN
     Indication: OROPHARYNGEAL PAIN
  2. IBUPROFEN. [Suspect]
     Active Substance: IBUPROFEN
     Indication: PYREXIA
     Dosage: 10 MG/KG, TID
     Route: 048

REACTIONS (11)
  - Faeces discoloured [Recovered/Resolved]
  - Haematemesis [Recovered/Resolved]
  - Peptic ulcer [Recovered/Resolved]
  - Iron deficiency anaemia [Unknown]
  - Abdominal pain upper [Recovered/Resolved]
  - Obstruction gastric [Recovered/Resolved]
  - Vomiting [Recovered/Resolved]
  - Weight decreased [Recovered/Resolved]
  - Gastric ulcer haemorrhage, obstructive [Recovered/Resolved]
  - Gastritis haemorrhagic [Recovered/Resolved]
  - Dyspepsia [Recovered/Resolved]
